FAERS Safety Report 7432762-3 (Version None)
Quarter: 2011Q2

REPORT INFORMATION
  Report Type: 
  Country: None (occurrence: None)
  Receive Date: 20110422
  Receipt Date: 20110418
  Transmission Date: 20111010
  Serious: Yes (Other)
  Sender: FDA-Public Use
  Company Number: A0924030A

PATIENT
  Sex: Female

DRUGS (1)
  1. TYKERB [Suspect]
     Dosage: 1250MG PER DAY
     Route: 065

REACTIONS (4)
  - SYNCOPE [None]
  - DECREASED APPETITE [None]
  - DIARRHOEA [None]
  - HYPOTENSION [None]
